FAERS Safety Report 5523089-5 (Version None)
Quarter: 2007Q4

REPORT INFORMATION
  Report Type: 
  Country: None (occurrence: None)
  Receive Date: 20071121
  Receipt Date: 20071113
  Transmission Date: 20080405
  Serious: Yes (Death, Other)
  Sender: FDA-Public Use
  Company Number: US-NOVOPROD-269294

PATIENT

DRUGS (1)
  1. NOVOSEVEN [Suspect]
     Indication: AORTIC ANEURYSM RUPTURE
     Dosage: UNKNOWN
     Route: 042

REACTIONS (2)
  - HAEMORRHAGE [None]
  - THROMBOSIS [None]
